FAERS Safety Report 4404156-6 (Version None)
Quarter: 2004Q3

REPORT INFORMATION
  Report Type: 
  Country: None (occurrence: None)
  Receive Date: 20040721
  Receipt Date: 20040721
  Transmission Date: 20050211
  Serious: Yes (Death)
  Sender: FDA-Public Use
  Company Number: None

PATIENT
  Sex: Male
  Weight: 23 kg

DRUGS (1)
  1. CYTARABINE [Suspect]
     Indication: BURKITT'S LYMPHOMA
     Dosage: 80MG/M2/HR OVER 48 HR INTRAVENOUS
     Route: 042
     Dates: start: 20040628, end: 20040629

REACTIONS (3)
  - CAPILLARY LEAK SYNDROME [None]
  - HYPOTENSION [None]
  - LUNG DISORDER [None]
